FAERS Safety Report 17225974 (Version 1)
Quarter: 2020Q1

REPORT INFORMATION
  Report Type: Spontaneous
  Country: ES (occurrence: ES)
  Receive Date: 20200102
  Receipt Date: 20200102
  Transmission Date: 20200409
  Serious: Yes (Hospitalization)
  Sender: FDA-Public Use
  Company Number: ES-TEVA-2019-ES-1160201

PATIENT
  Age: 43 Year
  Sex: Female

DRUGS (3)
  1. CELECOXIB. [Suspect]
     Active Substance: CELECOXIB
     Indication: MENISCUS INJURY
     Dosage: 200 MILLIGRAM DAILY;
     Route: 065
  2. METAMIZOLE [Concomitant]
     Active Substance: METAMIZOLE
     Indication: MENISCUS INJURY
     Dosage: 1725 MILLIGRAM DAILY;
     Route: 065
  3. CHONDROITIN SULFATE [Concomitant]
     Active Substance: CHONDROITIN SULFATE (BOVINE)
     Indication: MENISCUS INJURY
     Dosage: 400 MILLIGRAM DAILY;
     Route: 065

REACTIONS (1)
  - Bipolar disorder [Unknown]
